FAERS Safety Report 8557976 (Version 2)
Quarter: 2013Q2

REPORT INFORMATION
  Report Type: Spontaneous
  Country: US (occurrence: US)
  Receive Date: 20120511
  Receipt Date: 20130510
  Transmission Date: 20140414
  Serious: No
  Sender: FDA-Public Use
  Company Number: US-GLAXOSMITHKLINE-A0921904A

PATIENT
  Age: 62 Year
  Sex: Female

DRUGS (12)
  1. TYKERB [Suspect]
     Indication: PRODUCT USED FOR UNKNOWN INDICATION
     Dosage: 1000MG PER DAY
     Route: 048
     Dates: start: 20110215
  2. PEPCID [Concomitant]
  3. MUPIROCIN [Concomitant]
  4. LISINOPRIL [Concomitant]
  5. CEPHALEXIN [Concomitant]
  6. SIMVASTATIN [Concomitant]
  7. ASPIRIN [Concomitant]
  8. LEVOTHYROXINE [Concomitant]
  9. LEVOTHYROXINE [Concomitant]
  10. DILTIAZEM CD [Concomitant]
  11. ZINC [Concomitant]
  12. VITAMIN C [Concomitant]

REACTIONS (9)
  - Nail infection [Unknown]
  - Nasopharyngitis [Unknown]
  - Diarrhoea [Unknown]
  - Dysphagia [Unknown]
  - Nail disorder [Unknown]
  - Cough [Unknown]
  - Ingrowing nail [Unknown]
  - Nasal ulcer [Unknown]
  - Epistaxis [Unknown]
